FAERS Safety Report 22380353 (Version 1)
Quarter: 2023Q2

REPORT INFORMATION
  Report Type: Report from Study
  Country: CA (occurrence: CA)
  Receive Date: 20230529
  Receipt Date: 20230529
  Transmission Date: 20230722
  Serious: Yes (Other)
  Sender: FDA-Public Use
  Company Number: CA-HLS-202301310

PATIENT
  Age: 30 Year
  Sex: Male

DRUGS (1)
  1. CLOZARIL [Suspect]
     Active Substance: CLOZAPINE
     Indication: Product used for unknown indication
     Dosage: SIXTH DOSE: 150MG
     Route: 065

REACTIONS (4)
  - Anxiety [Unknown]
  - Hypertension [Unknown]
  - Panic attack [Unknown]
  - Tachycardia [Unknown]

NARRATIVE: CASE EVENT DATE: 20230517
